FAERS Safety Report 12512900 (Version 2)
Quarter: 2016Q4

REPORT INFORMATION
  Report Type: Spontaneous
  Country: US (occurrence: US)
  Receive Date: 20160630
  Receipt Date: 20161026
  Transmission Date: 20170207
  Serious: Yes (Other)
  Sender: FDA-Public Use
  Company Number: US-JNJFOC-20160516468

PATIENT
  Age: 84 Year
  Sex: Female
  Weight: 54.43 kg

DRUGS (7)
  1. XARELTO [Suspect]
     Active Substance: RIVAROXABAN
     Indication: CEREBROVASCULAR ACCIDENT PROPHYLAXIS
     Route: 048
     Dates: start: 2013, end: 2015
  2. PINDOLOL. [Concomitant]
     Active Substance: PINDOLOL
     Indication: CARDIAC DISORDER
     Dosage: IN THE MORNING
     Route: 048
  3. XARELTO [Suspect]
     Active Substance: RIVAROXABAN
     Indication: CEREBROVASCULAR ACCIDENT PROPHYLAXIS
     Dosage: ONE IN EVENING
     Route: 048
     Dates: start: 2015
  4. XARELTO [Suspect]
     Active Substance: RIVAROXABAN
     Indication: ATRIAL FIBRILLATION
     Dosage: ONE IN EVENING
     Route: 048
     Dates: start: 2015
  5. ATORVASTATIN [Concomitant]
     Active Substance: ATORVASTATIN
     Route: 065
  6. AMLODIPINE BESYLATE. [Concomitant]
     Active Substance: AMLODIPINE BESYLATE
     Indication: BLOOD PRESSURE MEASUREMENT
     Dosage: ONCE A DAY IN MORNING, ANOTHER ONE AT??NIGHT IF BP OVER 160
     Route: 065
  7. XARELTO [Suspect]
     Active Substance: RIVAROXABAN
     Indication: ATRIAL FIBRILLATION
     Route: 048
     Dates: start: 2013, end: 2015

REACTIONS (7)
  - Vertigo [Recovered/Resolved]
  - Tinnitus [Not Recovered/Not Resolved]
  - Aphonia [Not Recovered/Not Resolved]
  - Feeling hot [Recovered/Resolved]
  - Deafness [Not Recovered/Not Resolved]
  - Nasopharyngitis [Not Recovered/Not Resolved]
  - Dizziness [Recovered/Resolved]

NARRATIVE: CASE EVENT DATE: 2015
